FAERS Safety Report 16168917 (Version 1)
Quarter: 2019Q2

REPORT INFORMATION
  Report Type: Spontaneous
  Country: ES (occurrence: ES)
  Receive Date: 20190408
  Receipt Date: 20190408
  Transmission Date: 20190711
  Serious: Yes (Other)
  Sender: FDA-Public Use
  Company Number: ES-MICRO LABS LIMITED-ML2019-00849

PATIENT
  Sex: Male

DRUGS (5)
  1. DICLOFENAC [Suspect]
     Active Substance: DICLOFENAC
  2. IBUPROFEN. [Suspect]
     Active Substance: IBUPROFEN
  3. INDOMETHACIN. [Suspect]
     Active Substance: INDOMETHACIN
  4. PIROXICAM. [Suspect]
     Active Substance: PIROXICAM
  5. PARACETAMOL [Suspect]
     Active Substance: ACETAMINOPHEN

REACTIONS (2)
  - Mast cell activation syndrome [Recovered/Resolved]
  - Anaphylactic reaction [Recovered/Resolved]
